FAERS Safety Report 7394057-6 (Version None)
Quarter: 2011Q2

REPORT INFORMATION
  Report Type: 
  Country: None (occurrence: None)
  Receive Date: 20110405
  Receipt Date: 20110323
  Transmission Date: 20111010
  Serious: Yes (Hospitalization)
  Sender: FDA-Public Use
  Company Number: JP-BRISTOL-MYERS SQUIBB COMPANY-15646573

PATIENT
  Age: 31 Year
  Sex: Male

DRUGS (7)
  1. PARIET [Concomitant]
     Dates: end: 20080323
  2. EFAVIRENZ CAPS 600 MG [Suspect]
     Indication: HIV INFECTION
     Route: 048
     Dates: start: 20050425, end: 20080713
  3. TRUVADA [Suspect]
     Indication: HIV INFECTION
     Route: 048
     Dates: start: 20050524
  4. AMMONIUM GLYCYRRHIZINATE [Concomitant]
     Dates: start: 20070418
  5. CYSTEINE [Concomitant]
     Dates: start: 20070418
  6. GLYCINE 1.5% [Concomitant]
     Dates: start: 20070418
  7. KOGENATE [Concomitant]

REACTIONS (2)
  - ARTHRITIS BACTERIAL [None]
  - LIVER FUNCTION TEST ABNORMAL [None]
